FAERS Safety Report 6018833-7 (Version None)
Quarter: 2008Q4

REPORT INFORMATION
  Report Type: 
  Country: None (occurrence: None)
  Receive Date: 20081224
  Receipt Date: 20081218
  Transmission Date: 20090506
  Serious: Yes (Other)
  Sender: FDA-Public Use
  Company Number: FR-RANBAXY-2008RR-19866

PATIENT
  Sex: Male
  Weight: 75 kg

DRUGS (5)
  1. METOPROLOL [Suspect]
     Indication: HYPERTENSION
     Dosage: 100 MG, UNK
     Route: 048
     Dates: start: 20081005, end: 20081015
  2. INDAPAMIDE [Concomitant]
     Indication: HYPERTENSION
     Dosage: 2 MG, UNK
     Dates: start: 20000101
  3. SECALIP [Concomitant]
     Indication: HYPERTRIGLYCERIDAEMIA
     Dosage: 100 MG, UNK
     Dates: start: 19850101
  4. PAROXETINE [Concomitant]
     Indication: ANXIETY
     Dosage: UNK MG, UNK
     Dates: start: 20060101
  5. LOPRESSOR [Concomitant]
     Dosage: 100 MG, UNK

REACTIONS (3)
  - CARDIAC DISORDER [None]
  - HEADACHE [None]
  - TACHYCARDIA [None]
